FAERS Safety Report 21361809 (Version 1)
Quarter: 2022Q3

REPORT INFORMATION
  Report Type: Spontaneous
  Country: IN (occurrence: IN)
  Receive Date: 20220922
  Receipt Date: 20220922
  Transmission Date: 20221027
  Serious: Yes (Hospitalization, Other)
  Sender: FDA-Public Use
  Company Number: IN-SUN PHARMACEUTICAL INDUSTRIES LTD-2022R1-355385

PATIENT
  Age: 72 Year
  Sex: Male

DRUGS (3)
  1. METHOTREXATE [Suspect]
     Active Substance: METHOTREXATE
     Indication: Arthritis reactive
     Dosage: 20 MILLIGRAM, WEEKLY
     Route: 065
     Dates: start: 201708
  2. PREDNISONE [Concomitant]
     Active Substance: PREDNISONE
     Indication: Arthritis reactive
     Dosage: 0.5 MILLIGRAM/KILOGRAM
     Route: 065
  3. PREDNISONE [Concomitant]
     Active Substance: PREDNISONE
     Dosage: TAPERED RAPIDLY
     Route: 065

REACTIONS (2)
  - Granulomatous pneumonitis [Recovered/Resolved]
  - Hypercalcaemia [Recovered/Resolved]

NARRATIVE: CASE EVENT DATE: 20171001
